FAERS Safety Report 5477026-2 (Version None)
Quarter: 2007Q4

REPORT INFORMATION
  Report Type: 
  Country: None (occurrence: None)
  Receive Date: 20071004
  Receipt Date: 20070926
  Transmission Date: 20080405
  Serious: Yes (Other)
  Sender: FDA-Public Use
  Company Number: US-AMGEN-US234664

PATIENT
  Sex: Male
  Weight: 88 kg

DRUGS (4)
  1. EPOGEN [Suspect]
     Indication: DIALYSIS
     Route: 042
     Dates: start: 19970128, end: 20070719
  2. SENSIPAR [Concomitant]
     Indication: HYPERPARATHYROIDISM SECONDARY
     Dates: start: 20040521
  3. RENAGEL [Concomitant]
     Dates: start: 20020410
  4. ZEMPLAR [Concomitant]
     Dates: end: 20070622

REACTIONS (2)
  - ANAEMIA [None]
  - BLOOD PARATHYROID HORMONE INCREASED [None]
